FAERS Safety Report 15272877 (Version 1)
Quarter: 2018Q3

REPORT INFORMATION
  Report Type: Spontaneous
  Country: US (occurrence: US)
  Receive Date: 20180813
  Receipt Date: 20180813
  Transmission Date: 20181010
  Serious: Yes (Other)
  Sender: FDA-Public Use
  Company Number: US-JAZZ-JPI-P-024344

PATIENT
  Age: 34 Year
  Sex: Female
  Weight: 54.55 kg

DRUGS (9)
  1. DEXLANSOPRAZOLE [Concomitant]
     Active Substance: DEXLANSOPRAZOLE
     Indication: GASTROOESOPHAGEAL REFLUX DISEASE
  2. CEPHALEXIN. [Concomitant]
     Active Substance: CEPHALEXIN
     Indication: ANTIBIOTIC PROPHYLAXIS
  3. TOPIRAMATE. [Concomitant]
     Active Substance: TOPIRAMATE
     Indication: MIGRAINE
  4. VITAMIN D3 [Concomitant]
     Active Substance: CHOLECALCIFEROL
     Indication: VITAMIN D DEFICIENCY
  5. OLOPATADINE HYDROCHLORIDE. [Concomitant]
     Active Substance: OLOPATADINE HYDROCHLORIDE
     Indication: MULTIPLE ALLERGIES
  6. XYREM [Suspect]
     Active Substance: SODIUM OXYBATE
     Indication: NARCOLEPSY
     Dosage: UNKNOWN SINGLE DOSE
     Route: 048
     Dates: start: 200411, end: 201109
  7. XYREM [Suspect]
     Active Substance: SODIUM OXYBATE
     Indication: CATAPLEXY
     Dosage: 4.5 G, BID
     Route: 048
     Dates: start: 20120730
  8. MONTELUKAST SODIUM. [Concomitant]
     Active Substance: MONTELUKAST SODIUM
     Indication: MULTIPLE ALLERGIES
  9. CRANBERRY WITH VITAMIN C EXTRACT [Concomitant]
     Indication: VITAMIN SUPPLEMENTATION

REACTIONS (15)
  - Systemic lupus erythematosus [Unknown]
  - Tremor [Unknown]
  - Perinatal depression [Unknown]
  - Tinnitus [Unknown]
  - Crying [Unknown]
  - Headache [Unknown]
  - Hysterectomy [Recovered/Resolved]
  - Weight decreased [Not Recovered/Not Resolved]
  - Feeling abnormal [Unknown]
  - Brain operation [Recovered/Resolved]
  - Emotional disorder [Unknown]
  - Insomnia [Unknown]
  - Food craving [Unknown]
  - Asthenia [Unknown]
  - Pregnancy [Unknown]

NARRATIVE: CASE EVENT DATE: 2004
